FAERS Safety Report 4891093-6 (Version None)
Quarter: 2006Q1

REPORT INFORMATION
  Report Type: 
  Country: None (occurrence: None)
  Receive Date: 20060125
  Receipt Date: 20041203
  Transmission Date: 20060701
  Serious: Yes (Death)
  Sender: FDA-Public Use
  Company Number: US-MERCK-0412USA00608

PATIENT
  Age: 60 Year
  Sex: Female
  Weight: 66 kg

DRUGS (12)
  1. VIOXX [Suspect]
     Indication: OSTEOARTHRITIS
     Route: 048
     Dates: start: 20000428, end: 20040701
  2. VIOXX [Suspect]
     Route: 048
  3. FLEXERIL [Concomitant]
     Route: 048
  4. PREMPRO [Concomitant]
     Route: 048
  5. CALCIUM (UNSPECIFIED) [Concomitant]
     Route: 048
  6. HYDROXYZINE HYDROCHLORIDE [Concomitant]
     Route: 048
  7. PREVACID [Concomitant]
     Route: 048
  8. ZELNORM [Concomitant]
     Route: 048
  9. ACTONEL [Concomitant]
     Route: 048
  10. DETROL LA [Concomitant]
     Route: 048
  11. HUMIBID L.A. [Concomitant]
     Route: 048
  12. PROTONIX [Concomitant]
     Route: 048

REACTIONS (10)
  - ARRHYTHMIA [None]
  - BLOOD PARATHYROID HORMONE INCREASED [None]
  - COUGH [None]
  - GASTROOESOPHAGEAL REFLUX DISEASE [None]
  - HIATUS HERNIA [None]
  - HYPERTENSION [None]
  - IRRITABLE BOWEL SYNDROME [None]
  - OSTEOPENIA [None]
  - SPINAL COMPRESSION FRACTURE [None]
  - SPINAL OSTEOARTHRITIS [None]
